FAERS Safety Report 8141867-3 (Version None)
Quarter: 2012Q1

REPORT INFORMATION
  Report Type: 
  Country: None (occurrence: None)
  Receive Date: 20120216
  Receipt Date: 20120213
  Transmission Date: 20120608
  Serious: Yes (Other)
  Sender: FDA-Public Use
  Company Number: US-PFIZER INC-2012039473

PATIENT

DRUGS (1)
  1. LYRICA [Suspect]
     Dosage: UNK

REACTIONS (7)
  - FIBROMYALGIA [None]
  - DIZZINESS [None]
  - FALL [None]
  - KNEE ARTHROPLASTY [None]
  - DRUG INEFFECTIVE [None]
  - DISORIENTATION [None]
  - PAIN [None]
